FAERS Safety Report 22664853 (Version 1)
Quarter: 2023Q2

REPORT INFORMATION
  Report Type: Spontaneous
  Country: US (occurrence: None)
  Receive Date: 20230630
  Receipt Date: 20230630
  Transmission Date: 20230722
  Serious: Yes (Disabling)
  Sender: FDA-Public Use
  Company Number: None

PATIENT
  Age: 42 Year
  Sex: Male
  Weight: 100.8 kg

DRUGS (1)
  1. QVAR [Suspect]
     Active Substance: BECLOMETHASONE DIPROPIONATE
     Indication: Asthma
     Dosage: OTHER STRENGTH : MCG;?FREQUENCY : EVERY 12 HOURS;?
     Route: 055
     Dates: start: 20230510

REACTIONS (1)
  - Macular oedema [None]

NARRATIVE: CASE EVENT DATE: 20230601
